FAERS Safety Report 6389485-1 (Version None)
Quarter: 2009Q4

REPORT INFORMATION
  Report Type: 
  Country: None (occurrence: None)
  Receive Date: 20091005
  Receipt Date: 20091005
  Transmission Date: 20100525
  Serious: Yes (Life-Threatening)
  Sender: FDA-Public Use
  Company Number: None

PATIENT
  Sex: Female
  Weight: 95 kg

DRUGS (2)
  1. GEODON [Suspect]
     Indication: ANXIETY
     Dosage: 20 MG X 1 BY MOUTH
     Route: 048
  2. GEODON [Suspect]
     Indication: PARANOIA
     Dosage: 20 MG X 1 BY MOUTH
     Route: 048

REACTIONS (14)
  - ANGER [None]
  - ANXIETY [None]
  - DIVORCED [None]
  - DRUG HYPERSENSITIVITY [None]
  - DYSPHAGIA [None]
  - FALL [None]
  - FEAR [None]
  - HEADACHE [None]
  - MUSCULOSKELETAL STIFFNESS [None]
  - NERVOUS SYSTEM DISORDER [None]
  - PARANOIA [None]
  - RESPIRATORY DISORDER [None]
  - SCREAMING [None]
  - UTERINE HAEMORRHAGE [None]
